FAERS Safety Report 6750078-5 (Version None)
Quarter: 2010Q2

REPORT INFORMATION
  Report Type: 
  Country: None (occurrence: None)
  Receive Date: 20100601
  Receipt Date: 20100518
  Transmission Date: 20101027
  Serious: Yes (Hospitalization, Other)
  Sender: FDA-Public Use
  Company Number: FR-PFIZER INC-2009296562

PATIENT
  Age: 20 Year
  Sex: Male
  Weight: 51 kg

DRUGS (3)
  1. SALAZOPYRIN [Suspect]
     Indication: SPONDYLITIS
     Dosage: 4 TABLETS PER DAY
     Dates: start: 20081101, end: 20091105
  2. NAPROXEN [Concomitant]
     Indication: SPONDYLITIS
     Dosage: 1 PER DAY
     Route: 048
     Dates: start: 20090601
  3. MOPRAL [Concomitant]
     Dosage: 1 PER DAY
     Route: 048
     Dates: start: 20080101

REACTIONS (4)
  - BLOOD CREATINE PHOSPHOKINASE INCREASED [None]
  - PERTUSSIS [None]
  - TENDONITIS [None]
  - TRANSAMINASES INCREASED [None]
